FAERS Safety Report 6329165-1 (Version None)
Quarter: 2009Q3

REPORT INFORMATION
  Report Type: 
  Country: None (occurrence: None)
  Receive Date: 20090826
  Receipt Date: 20080915
  Transmission Date: 20100115
  Serious: No
  Sender: FDA-Public Use
  Company Number: US-ASTRAZENECA-2008UW19070

PATIENT
  Age: 81 Year
  Sex: Male
  Weight: 78 kg

DRUGS (5)
  1. IRESSA [Suspect]
     Indication: LUNG NEOPLASM MALIGNANT
     Route: 048
     Dates: start: 20031101
  2. LUNESTA [Concomitant]
  3. LEVOTHYROXINE SODIUM [Concomitant]
  4. ZOLOFT [Concomitant]
  5. XANAX [Concomitant]

REACTIONS (3)
  - DERMATITIS [None]
  - OEDEMA PERIPHERAL [None]
  - RASH [None]
